FAERS Safety Report 14524022 (Version 1)
Quarter: 2018Q1

REPORT INFORMATION
  Report Type: Spontaneous
  Country: FR (occurrence: FR)
  Receive Date: 20180213
  Receipt Date: 20180213
  Transmission Date: 20180509
  Serious: Yes (Hospitalization, Disabling, Other)
  Sender: FDA-Public Use
  Company Number: FR-ABBVIE-18K-056-2240870-00

PATIENT
  Age: 20 Year
  Sex: Male
  Weight: 74 kg

DRUGS (1)
  1. HUMIRA [Suspect]
     Active Substance: ADALIMUMAB
     Indication: COLITIS ULCERATIVE
     Route: 058
     Dates: start: 201701, end: 201709

REACTIONS (8)
  - Xerosis [Unknown]
  - Rash macular [Unknown]
  - Alopecia areata [Not Recovered/Not Resolved]
  - Papule [Unknown]
  - Lymphadenitis [Unknown]
  - Headache [Unknown]
  - Lupus-like syndrome [Unknown]
  - Dry mouth [Unknown]

NARRATIVE: CASE EVENT DATE: 201707
